FAERS Safety Report 9667580 (Version 1)
Quarter: 2013Q4

REPORT INFORMATION
  Report Type: Spontaneous
  Country: US (occurrence: US)
  Receive Date: 20131104
  Receipt Date: 20131104
  Transmission Date: 20140711
  Serious: No
  Sender: FDA-Public Use
  Company Number: US-BIOGENIDEC-2013BI092828

PATIENT
  Sex: Female

DRUGS (14)
  1. TECFIDERA [Suspect]
     Indication: MULTIPLE SCLEROSIS
     Route: 048
     Dates: start: 20130529
  2. TECFIDERA [Suspect]
     Indication: MULTIPLE SCLEROSIS
  3. METOPROLOL TARTRATE [Concomitant]
  4. TIZANIDINE [Concomitant]
  5. ESTRING [Concomitant]
  6. CYMBALTA [Concomitant]
  7. CYMBALTA [Concomitant]
  8. RISPERIDONE [Concomitant]
  9. MODAFINIL [Concomitant]
  10. MODAFINIL [Concomitant]
  11. CLONAZEPAM [Concomitant]
  12. GABAPENTIN [Concomitant]
  13. HYDROCODONE ACETAMINOPHEN [Concomitant]
  14. PROVIGIL [Concomitant]

REACTIONS (3)
  - Hyperhidrosis [Unknown]
  - Nausea [Recovered/Resolved]
  - Multiple sclerosis relapse [Unknown]
